FAERS Safety Report 12664478 (Version 2)
Quarter: 2016Q3

REPORT INFORMATION
  Report Type: Spontaneous
  Country: US (occurrence: US)
  Receive Date: 20160818
  Receipt Date: 20160823
  Transmission Date: 20161109
  Serious: No
  Sender: FDA-Public Use
  Company Number: US-PFIZER INC-2016379758

PATIENT
  Age: 74 Year
  Sex: Female
  Weight: 61.68 kg

DRUGS (1)
  1. PANTOPRAZOLE [Suspect]
     Active Substance: PANTOPRAZOLE SODIUM
     Indication: GASTROOESOPHAGEAL REFLUX DISEASE
     Dosage: 40 MG, UNK
     Dates: start: 201605

REACTIONS (4)
  - Constipation [Unknown]
  - Intentional product misuse [Unknown]
  - Depression [Unknown]
  - Feeling jittery [Unknown]
